FAERS Safety Report 25891356 (Version 4)
Quarter: 2025Q4

REPORT INFORMATION
  Report Type: Report from Study
  Country: BR (occurrence: BR)
  Receive Date: 20251007
  Receipt Date: 20251024
  Transmission Date: 20260117
  Serious: Yes (Other)
  Sender: NOVARTIS
  Company Number: BR-002147023-NVSC2025BR155015

PATIENT
  Sex: Female
  Weight: 72 kg

DRUGS (8)
  1. ZOMETA [Suspect]
     Active Substance: ZOLEDRONIC ACID
     Indication: Product used for unknown indication
     Dosage: UNK
     Route: 065
     Dates: start: 2022
  2. LETROZOLE [Concomitant]
     Active Substance: LETROZOLE
     Indication: Product used for unknown indication
     Dosage: 1 DOSAGE FORM, QD
     Route: 048
     Dates: start: 2022
  3. BISOPROLOL FUMARATE [Concomitant]
     Active Substance: BISOPROLOL FUMARATE
     Indication: Product used for unknown indication
     Dosage: UNK (5MG)
     Route: 065
  4. AMLODIPINE\VALSARTAN [Concomitant]
     Active Substance: AMLODIPINE\VALSARTAN
     Indication: Product used for unknown indication
     Dosage: UNK (80/5MG)
     Route: 065
  5. CILOSTAZOL [Concomitant]
     Active Substance: CILOSTAZOL
     Indication: Product used for unknown indication
     Dosage: UNK (50MG)
     Route: 065
  6. Ecasil [Concomitant]
     Indication: Product used for unknown indication
     Dosage: UNK
     Route: 065
  7. EZETIMIBE\ROSUVASTATIN CALCIUM [Concomitant]
     Active Substance: EZETIMIBE\ROSUVASTATIN CALCIUM
     Indication: Product used for unknown indication
     Dosage: UNK (10/10 MG)
     Route: 065
  8. GLIFAGE [Concomitant]
     Active Substance: METFORMIN HYDROCHLORIDE
     Indication: Product used for unknown indication
     Dosage: UNK
     Route: 065

REACTIONS (20)
  - Osteonecrosis [Unknown]
  - Complicated appendicitis [Unknown]
  - Abdominal pain upper [Unknown]
  - Carotid artery disease [Recovered/Resolved]
  - Thrombosis [Unknown]
  - Chikungunya virus infection [Unknown]
  - Immunodeficiency [Not Recovered/Not Resolved]
  - Dry skin [Not Recovered/Not Resolved]
  - Vitiligo [Not Recovered/Not Resolved]
  - Skin discolouration [Unknown]
  - Decreased immune responsiveness [Unknown]
  - Anaemia [Not Recovered/Not Resolved]
  - Emotional disorder [Unknown]
  - Carpal tunnel syndrome [Unknown]
  - Hypoaesthesia [Recovering/Resolving]
  - Grip strength decreased [Recovering/Resolving]
  - Rash macular [Recovered/Resolved]
  - Pain [Recovered/Resolved]
  - Movement disorder [Unknown]
  - Arthralgia [Unknown]
